FAERS Safety Report 15552501 (Version 2)
Quarter: 2020Q2

REPORT INFORMATION
  Report Type: Report from Study
  Country: US (occurrence: US)
  Receive Date: 20181025
  Receipt Date: 20200422
  Transmission Date: 20200713
  Serious: Yes (Hospitalization, Other)
  Sender: FDA-Public Use
  Company Number: US-ACTELION-A-US2018-176775

PATIENT
  Age: 66 Year
  Sex: Female

DRUGS (63)
  1. LATANOPROST. [Concomitant]
     Active Substance: LATANOPROST
     Dosage: 0.005% 1 DROP DAILY AT NIGHT
     Dates: start: 20171214
  2. ALLOPURINOL. [Concomitant]
     Active Substance: ALLOPURINOL
     Indication: END STAGE RENAL DISEASE
     Dosage: 100 MG, QOD
  3. HYDRALAZINE [Concomitant]
     Active Substance: HYDRALAZINE HYDROCHLORIDE
     Indication: HYPERTENSION
     Dosage: 50 MG, QD
  4. FUROSEMIDE. [Concomitant]
     Active Substance: FUROSEMIDE
     Dosage: 10 MG/ML, BID
     Route: 042
     Dates: start: 2018
  5. CHLORHEXIDINE GLUCONATE. [Concomitant]
     Active Substance: CHLORHEXIDINE GLUCONATE
     Dosage: 15 ML, BID
     Dates: start: 20180906
  6. SODIUM CITRATE AND CITRIC ACID [Concomitant]
     Active Substance: CITRIC ACID MONOHYDRATE\SODIUM CITRATE
     Indication: END STAGE RENAL DISEASE
     Dosage: UNK
     Dates: start: 20180906
  7. EVEROLIMUS. [Concomitant]
     Active Substance: EVEROLIMUS
     Indication: END STAGE RENAL DISEASE
     Dosage: 1.5 MG, BID
     Dates: start: 2018
  8. FENTANYL. [Concomitant]
     Active Substance: FENTANYL
     Indication: ABDOMINAL PAIN
     Dosage: 25MCG/0.5ML, Q2HRS
     Route: 042
     Dates: start: 20181007
  9. FENTANYL. [Concomitant]
     Active Substance: FENTANYL
     Dosage: 2000 MCG
     Route: 042
     Dates: start: 20180904, end: 20181006
  10. HYDROCORTISONE. [Concomitant]
     Active Substance: HYDROCORTISONE
     Dosage: 50 MG, Q6HR
     Route: 042
     Dates: start: 201810
  11. LANOLIN W/MINERAL OIL/PETROLATUM [Concomitant]
     Dosage: 1 APPLICATION, Q12HRS
  12. BACITRACIN. [Concomitant]
     Active Substance: BACITRACIN
     Dosage: 1 APPLICATION, QD
     Route: 061
  13. DIPHENHYDRAMINE. [Concomitant]
     Active Substance: DIPHENHYDRAMINE
  14. ALTEPLASE. [Concomitant]
     Active Substance: ALTEPLASE
     Indication: STAPHYLOCOCCAL INFECTION
     Dosage: 1 MG/ML, Q8HR
  15. WARFARIN [Concomitant]
     Active Substance: WARFARIN
     Dosage: 5 MG, QD
  16. LEVOTHYROXINE. [Concomitant]
     Active Substance: LEVOTHYROXINE
     Dosage: 125 MCG, UNK
  17. ASPIRIN. [Concomitant]
     Active Substance: ASPIRIN
     Dosage: 81 MG, QD
  18. ACETAMINOPHEN. [Concomitant]
     Active Substance: ACETAMINOPHEN
     Indication: ABDOMINAL PAIN
     Dosage: 500 MG, Q6HRS
     Dates: start: 20180903
  19. ONDANSETRON [Concomitant]
     Active Substance: ONDANSETRON
     Indication: GASTROOESOPHAGEAL REFLUX DISEASE
     Dosage: 4MG/2ML, Q6HRS
     Route: 042
  20. SODIUM CHLORIDE. [Concomitant]
     Active Substance: SODIUM CHLORIDE
     Dosage: 100 ML, UNK
  21. ASCORBIC ACID. [Concomitant]
     Active Substance: ASCORBIC ACID
     Dosage: 1500 MG, Q6H
     Dates: start: 201810
  22. ROCURONIUM [Concomitant]
     Active Substance: ROCURONIUM BROMIDE
     Indication: STAPHYLOCOCCAL INFECTION
     Dosage: 100MG/10ML, SINGLE
     Route: 042
  23. CEFEPIME [Concomitant]
     Active Substance: CEFEPIME HYDROCHLORIDE
     Indication: PNEUMONIA
     Dosage: 2 G, 10 ML, QD
     Route: 042
  24. SILDENAFIL. [Concomitant]
     Active Substance: SILDENAFIL
     Indication: PULMONARY HYPERTENSION
     Dosage: 20 MG, TID
  25. PREDNISONE. [Concomitant]
     Active Substance: PREDNISONE
     Indication: PNEUMONIA
     Dosage: 5 MG, QD
     Dates: start: 20180903
  26. FUROSEMIDE. [Concomitant]
     Active Substance: FUROSEMIDE
     Indication: PULMONARY HYPERTENSION
     Dosage: 20 MG, QD
  27. LEVETIRACETAM. [Concomitant]
     Active Substance: LEVETIRACETAM
     Indication: SEIZURE
     Dosage: 1000 MG, UNK
     Dates: start: 20180906
  28. HEPARIN SODIUM. [Concomitant]
     Active Substance: HEPARIN SODIUM
     Dosage: 25000 UNIT/250 ML, UNK
     Route: 041
  29. HEPARIN SODIUM. [Concomitant]
     Active Substance: HEPARIN SODIUM
     Dosage: 250 UNK
     Route: 042
  30. OPSUMIT [Suspect]
     Active Substance: MACITENTAN
     Indication: PULMONARY ARTERIAL HYPERTENSION
     Dosage: 10 MG, QD
     Route: 048
     Dates: start: 20180719, end: 20180912
  31. DAPSONE. [Concomitant]
     Active Substance: DAPSONE
     Dosage: 50 MG, QD
     Dates: start: 20180203
  32. THIAMINE. [Concomitant]
     Active Substance: THIAMINE
     Dosage: 200 MG 2 ML, BID
     Route: 042
  33. VANCOMYCIN [Concomitant]
     Active Substance: VANCOMYCIN
     Indication: PNEUMONIA
     Dosage: 1.5 G/15 ML, Q24HR
  34. NOREPINEPHRINE HYDROCHLORIDE [Concomitant]
     Active Substance: NOREPINEPHRINE HYDROCHLORIDE, (+/-)-
     Indication: HYPERTENSION
     Dosage: 64 MG, UNK
     Route: 042
  35. FAMOTIDINE. [Concomitant]
     Active Substance: FAMOTIDINE
     Indication: GASTROOESOPHAGEAL REFLUX DISEASE
     Dosage: 20 MG, QD
  36. INFLUENZA VIRUS VACCINE [Concomitant]
     Active Substance: INFLUENZA VIRUS VACCINE
     Dosage: 0.5 ML
  37. KETAMINE [Concomitant]
     Active Substance: KETAMINE
     Dosage: 100 MG/10 ML
     Route: 042
  38. MEROPENEM. [Concomitant]
     Active Substance: MEROPENEM
     Indication: STAPHYLOCOCCAL INFECTION
     Dosage: 1000 MG/20ML, Q12HRS
  39. DAPSONE. [Concomitant]
     Active Substance: DAPSONE
     Indication: END STAGE RENAL DISEASE
     Dosage: 25 MG, QD
     Dates: start: 20171214
  40. SILDENAFIL. [Concomitant]
     Active Substance: SILDENAFIL
     Dosage: 40 MG, TID
     Route: 048
     Dates: start: 20180420, end: 20180912
  41. MYCOPHENOLATE [Concomitant]
     Active Substance: MYCOPHENOLIC ACID
     Indication: END STAGE RENAL DISEASE
     Dosage: 250 MG  2 TABLETS  TWICE DAILY
     Dates: start: 20171214
  42. ALLOPURINOL. [Concomitant]
     Active Substance: ALLOPURINOL
     Dosage: 100 MG, BID
     Dates: start: 20180902, end: 20181004
  43. LABETALOL [Concomitant]
     Active Substance: LABETALOL\LABETALOL HYDROCHLORIDE
     Indication: HYPERTENSION
     Dosage: 200 MG 2 TABLETS , TWICE DAILY
     Dates: start: 20180903
  44. HEPARIN SODIUM. [Concomitant]
     Active Substance: HEPARIN SODIUM
     Indication: DEEP VEIN THROMBOSIS
     Dosage: 5000 ML, UNK
     Route: 041
  45. PIPERACILLIN AND TAZOBACTAM [Concomitant]
     Active Substance: PIPERACILLIN SODIUM\TAZOBACTAM SODIUM
     Dosage: 3.375 G, UNK
  46. THIAMINE. [Concomitant]
     Active Substance: THIAMINE
     Dosage: 200 MG, BID
  47. MIDAZOLAM. [Concomitant]
     Active Substance: MIDAZOLAM
     Dosage: 2MG/2ML, Q2HRS
     Route: 042
  48. VASOPRESSIN. [Concomitant]
     Active Substance: VASOPRESSIN
     Indication: HYPERTENSION
     Dosage: 50 UNITS, UNK
     Route: 041
  49. VECURONIUM BROMIDE. [Concomitant]
     Active Substance: VECURONIUM BROMIDE
  50. MICAFUNGIN. [Concomitant]
     Active Substance: MICAFUNGIN SODIUM
     Indication: STAPHYLOCOCCAL INFECTION
     Dosage: 100MG/10ML, Q24HRS
     Route: 042
     Dates: start: 20181006
  51. ROSUVASTATIN. [Concomitant]
     Active Substance: ROSUVASTATIN
     Indication: HYPERTENSION
     Dosage: 10 MG, QPM
     Dates: start: 20180903
  52. LEVOTHYROXINE. [Concomitant]
     Active Substance: LEVOTHYROXINE
     Indication: HYPOTHYROIDISM
     Dosage: 25 MG, QD
     Dates: start: 20180903
  53. PANTOPRAZOLE [Concomitant]
     Active Substance: PANTOPRAZOLE
     Indication: GASTROOESOPHAGEAL REFLUX DISEASE
     Dosage: 40 MG, QD
     Dates: start: 20180903
  54. HYDROCORTISONE. [Concomitant]
     Active Substance: HYDROCORTISONE
     Indication: HYPOTHYROIDISM
     Dosage: 5 MG, UNK
  55. DEXMEDETOMIDINE. [Concomitant]
     Active Substance: DEXMEDETOMIDINE
     Dosage: 400MCG/100ML, UNK
     Route: 042
     Dates: start: 20181006
  56. HYDRALAZINE [Concomitant]
     Active Substance: HYDRALAZINE HYDROCHLORIDE
     Dosage: 10 MG, 0.5ML
     Route: 042
     Dates: start: 2018
  57. PHOSPHORUS [Concomitant]
     Active Substance: PHOSPHORUS
     Dosage: 250 MG, UNK
     Route: 048
  58. VANCOMYCIN [Concomitant]
     Active Substance: VANCOMYCIN
     Dosage: 1.75 G, 17.5 ML, QD
     Dates: start: 20180902
  59. EPOPROSTENOL SODIUM. [Concomitant]
     Active Substance: EPOPROSTENOL SODIUM
  60. MULTIVITAMIN [Concomitant]
     Active Substance: VITAMINS
     Dosage: UNK
  61. BUMETANIDE. [Concomitant]
     Active Substance: BUMETANIDE
     Indication: PULMONARY HYPERTENSION
     Dosage: 100 MG, UNK
     Route: 042
     Dates: start: 20180902
  62. NICARDIPINE [Concomitant]
     Active Substance: NICARDIPINE
     Dosage: 40 MG
     Route: 042
     Dates: start: 20180904
  63. TACROLIMUS. [Concomitant]
     Active Substance: TACROLIMUS
     Dosage: 1 MG/ML
     Dates: end: 20181005

REACTIONS (17)
  - Abdominal pain upper [Not Recovered/Not Resolved]
  - Dyspnoea exertional [Unknown]
  - Cough [Unknown]
  - N-terminal prohormone brain natriuretic peptide increased [Unknown]
  - Acute respiratory distress syndrome [Not Recovered/Not Resolved]
  - Dyspnoea [Not Recovered/Not Resolved]
  - Staphylococcal infection [Not Recovered/Not Resolved]
  - Enterococcal bacteraemia [Not Recovered/Not Resolved]
  - Chills [Unknown]
  - Alanine aminotransferase increased [Unknown]
  - Headache [Recovered/Resolved]
  - Subarachnoid haemorrhage [Not Recovered/Not Resolved]
  - Thrombosis [Not Recovered/Not Resolved]
  - Pulmonary oedema [Not Recovered/Not Resolved]
  - Aspartate aminotransferase increased [Unknown]
  - Chest pain [Unknown]
  - Abdominal pain lower [Not Recovered/Not Resolved]

NARRATIVE: CASE EVENT DATE: 20180719
